FAERS Safety Report 8292793 (Version 2)
Quarter: 2013Q2

REPORT INFORMATION
  Report Type: Report from Study
  Country: DE (occurrence: DE)
  Receive Date: 20111215
  Receipt Date: 20130612
  Transmission Date: 20140414
  Serious: Yes (Life-Threatening, Hospitalization)
  Sender: FDA-Public Use
  Company Number: DE-ROCHE-1021394

PATIENT
  Age: 39 Year
  Sex: Female
  Weight: 57.5 kg

DRUGS (7)
  1. METHOXY POLYETHYLENE GLYCOL-EPOETIN BETA [Suspect]
     Indication: NEPHROGENIC ANAEMIA
     Dosage: LAST DOSE PRIOR TO SAE 16/SEP/2011
     Route: 058
     Dates: start: 20101118
  2. FUROSEMIDE [Concomitant]
     Route: 065
     Dates: start: 20091006
  3. ALLOPURINOL [Concomitant]
     Route: 065
     Dates: start: 20070830
  4. ALFACALCIDOL [Concomitant]
     Route: 065
     Dates: start: 20090129
  5. SEVELAMER [Concomitant]
     Route: 065
     Dates: start: 20100408
  6. NATRIUMHYDROGENCARBONAT [Concomitant]
     Route: 065
     Dates: start: 20090526
  7. PREDNISOLON [Concomitant]
     Route: 065
     Dates: start: 20090622

REACTIONS (1)
  - Hyperthyroidism [Recovered/Resolved]
